FAERS Safety Report 22112901 (Version 2)
Quarter: 2023Q2

REPORT INFORMATION
  Report Type: Spontaneous
  Country: IT (occurrence: IT)
  Receive Date: 20230320
  Receipt Date: 20230415
  Transmission Date: 20230721
  Serious: Yes (Hospitalization, Other)
  Sender: FDA-Public Use
  Company Number: IT-STADA-271138

PATIENT
  Age: 31 Year
  Sex: Female

DRUGS (6)
  1. VALPROATE SODIUM [Suspect]
     Active Substance: VALPROATE SODIUM
     Indication: Epilepsy
     Dosage: 500 MILLIGRAM, TWO TIMES A DAY
     Route: 065
     Dates: end: 2007
  2. CEFONICID SODIUM [Suspect]
     Active Substance: CEFONICID SODIUM
     Indication: Respiratory tract infection
     Dosage: 25 MILLIGRAM, ONCE A DAY (SCHEDULED TO BE ADMINISTERED FOR 1 WEEK)
     Route: 065
     Dates: start: 2007
  3. AMANTADINE [Concomitant]
     Active Substance: AMANTADINE
     Indication: Parkinsonism
     Dosage: 200 MILLIGRAM, ONCE A DAY
     Route: 065
  4. LEVODOPA [Concomitant]
     Active Substance: LEVODOPA
     Indication: Parkinsonism
     Dosage: 500 MILLIGRAM, ONCE A DAY
     Route: 065
  5. SOBREROL, TRANS-, (+/-)- [Concomitant]
     Active Substance: SOBREROL, TRANS-, (+/-)-
     Indication: Respiratory tract infection
     Dosage: UNK
     Route: 065
     Dates: start: 2007
  6. MONTELUKAST [Concomitant]
     Active Substance: MONTELUKAST SODIUM
     Indication: Respiratory tract infection
     Dosage: UNK
     Route: 065
     Dates: start: 2007

REACTIONS (5)
  - Neurotoxicity [Recovering/Resolving]
  - Parkinsonism [Recovering/Resolving]
  - Amnesia [Not Recovered/Not Resolved]
  - Loss of personal independence in daily activities [Recovered/Resolved]
  - Cerebral atrophy [Recovering/Resolving]
